FAERS Safety Report 5021010-X (Version None)
Quarter: 2006Q2

REPORT INFORMATION
  Report Type: 
  Country: None (occurrence: None)
  Receive Date: 20060608
  Receipt Date: 20060519
  Transmission Date: 20061013
  Serious: Yes (Other)
  Sender: FDA-Public Use
  Company Number: PHBS2006BE07783

PATIENT
  Age: 60 Year
  Sex: Male

DRUGS (7)
  1. GLEEVEC [Suspect]
     Indication: GASTROINTESTINAL STROMAL TUMOUR
     Dosage: 100 MG, TID
     Route: 048
     Dates: start: 20051001
  2. GLEEVEC [Suspect]
     Dosage: 100 MG/D
     Route: 048
  3. EMCONCOR [Concomitant]
  4. RENITEC [Concomitant]
  5. GLUCOPHAGE [Concomitant]
  6. PLAVIX [Concomitant]
  7. NOSE SPRAY [Concomitant]

REACTIONS (5)
  - ANXIETY [None]
  - BURNING SENSATION [None]
  - DEPRESSION [None]
  - PRURITUS [None]
  - SUICIDAL IDEATION [None]
